FAERS Safety Report 8523477-9 (Version None)
Quarter: 2012Q3

REPORT INFORMATION
  Report Type: 
  Country: None (occurrence: None)
  Receive Date: 20120720
  Receipt Date: 20120710
  Transmission Date: 20120928
  Serious: Yes (Life-Threatening, Hospitalization, Other)
  Sender: FDA-Public Use
  Company Number: US-PERRIGO-12US001328

PATIENT
  Sex: Male
  Weight: 113.38 kg

DRUGS (2)
  1. IBUPROFEN [Suspect]
     Indication: HEADACHE
     Dosage: 200 MG, SINGLE
     Route: 048
     Dates: start: 20120209, end: 20120209
  2. ANTIHYPERTENSIVES [Concomitant]
     Indication: HYPERTENSION
     Dosage: UNK
     Route: 065

REACTIONS (8)
  - HAEMATOCHEZIA [None]
  - BLISTER [None]
  - GASTROINTESTINAL HAEMORRHAGE [None]
  - ERYTHEMA [None]
  - HAEMATEMESIS [None]
  - RASH [None]
  - CONSTIPATION [None]
  - DYSARTHRIA [None]
